FAERS Safety Report 11447755 (Version 1)
Quarter: 2015Q3

REPORT INFORMATION
  Report Type: Spontaneous
  Country: US (occurrence: US)
  Receive Date: 20150831
  Receipt Date: 20150831
  Transmission Date: 20151125
  Serious: Yes (Other)
  Sender: FDA-Public Use
  Company Number: US-ELI_LILLY_AND_COMPANY-US200904001837

PATIENT
  Age: 68 Year
  Sex: Male

DRUGS (6)
  1. ZANAFLEX [Concomitant]
     Active Substance: TIZANIDINE HYDROCHLORIDE
     Dosage: 2 MG, 4/D AS NEEDED
  2. CYMBALTA [Suspect]
     Active Substance: DULOXETINE HYDROCHLORIDE
     Dosage: 60 MG, UNK
     Dates: start: 20090114, end: 2009
  3. DILTIAZEM HCL CR [Concomitant]
     Indication: HYPERTENSION
     Dosage: 240 MG, UNK
  4. LISINOPRIL. [Concomitant]
     Active Substance: LISINOPRIL
     Indication: HYPERTENSION
     Dosage: 10 MG, UNK
  5. AMBIEN [Concomitant]
     Active Substance: ZOLPIDEM TARTRATE
  6. VICODIN [Concomitant]
     Active Substance: ACETAMINOPHEN\HYDROCODONE BITARTRATE
     Dosage: 5/500 MG

REACTIONS (2)
  - Syncope [Unknown]
  - Ankle fracture [Unknown]

NARRATIVE: CASE EVENT DATE: 20090119
